FAERS Safety Report 7079062-1 (Version None)
Quarter: 2010Q4

REPORT INFORMATION
  Report Type: 
  Country: None (occurrence: None)
  Receive Date: 20101021
  Receipt Date: 20101006
  Transmission Date: 20110411
  Serious: Yes (Other)
  Sender: FDA-Public Use
  Company Number: 2010MA003358

PATIENT
  Age: 67 Year
  Sex: Male

DRUGS (3)
  1. TRIAMCINOLONE ACETONIDE [Suspect]
     Indication: LOCAL ANAESTHESIA
     Dosage: ; IA
     Route: 014
  2. BUPIVACAINE HCL [Concomitant]
  3. IOPAMIDOL [Concomitant]

REACTIONS (3)
  - ANAPHYLACTIC REACTION [None]
  - ANGIOEDEMA [None]
  - SKIN TEST POSITIVE [None]
